FAERS Safety Report 24985396 (Version 2)
Quarter: 2025Q1

REPORT INFORMATION
  Report Type: Report from Study
  Country: US (occurrence: US)
  Receive Date: 20250219
  Receipt Date: 20250310
  Transmission Date: 20250409
  Serious: Yes (Hospitalization, Other)
  Sender: ACADIA PHARMACEUTICALS
  Company Number: US-ACADIA PHARMACEUTICALS INC.-ACA-2025-PIM-001305

PATIENT
  Sex: Male

DRUGS (1)
  1. NUPLAZID [Suspect]
     Active Substance: PIMAVANSERIN TARTRATE
     Indication: Parkinson^s disease psychosis
     Dosage: 34 MILLIGRAM, QD
     Route: 048
     Dates: start: 20250125

REACTIONS (5)
  - Influenza [Not Recovered/Not Resolved]
  - Pyrexia [Not Recovered/Not Resolved]
  - Hallucination [Recovering/Resolving]
  - Intentional dose omission [Not Recovered/Not Resolved]
  - Asthenia [Not Recovered/Not Resolved]
